FAERS Safety Report 8123221-3 (Version None)
Quarter: 2012Q1

REPORT INFORMATION
  Report Type: 
  Country: None (occurrence: None)
  Receive Date: 20120208
  Receipt Date: 20120126
  Transmission Date: 20120608
  Serious: Yes (Hospitalization)
  Sender: FDA-Public Use
  Company Number: IN-MYLANLABS-2012S1001996

PATIENT
  Age: 73 Year
  Sex: Male

DRUGS (10)
  1. ALBUTEROL SULFATE AUTOHALER [Concomitant]
     Route: 065
  2. LOSARTAN POTASSIUM [Concomitant]
     Route: 065
  3. FLUTICASONE PROPIONATE W/SALMETEROL [Concomitant]
     Route: 055
  4. ATORVASTATIN [Concomitant]
     Route: 065
  5. IPRATROPIUM BROMIDE [Concomitant]
     Route: 065
  6. FLUTICASONE PROPIONATE [Concomitant]
     Route: 065
  7. AZATHIOPRINE [Suspect]
     Indication: TRANSPLANT REJECTION
     Route: 065
  8. ASPIRIN [Concomitant]
     Route: 065
  9. PREDNISONE [Concomitant]
     Indication: TRANSPLANT REJECTION
     Route: 065
  10. HYDROCHLOROTHIAZIDE [Concomitant]
     Route: 065

REACTIONS (1)
  - HEPATITIS CHOLESTATIC [None]
